FAERS Safety Report 8959707 (Version 3)
Quarter: 2013Q1

REPORT INFORMATION
  Report Type: Spontaneous
  Country: US (occurrence: US)
  Receive Date: 20121212
  Receipt Date: 20130208
  Transmission Date: 20140127
  Serious: Yes (Other)
  Sender: FDA-Public Use
  Company Number: US-ROCHE-1167772

PATIENT
  Age: 40 Year
  Sex: Female
  Weight: 71.28 kg

DRUGS (14)
  1. ACTEMRA [Suspect]
     Indication: RHEUMATOID ARTHRITIS
     Route: 042
     Dates: start: 20110215, end: 20121126
  2. ACTEMRA [Suspect]
     Route: 042
     Dates: start: 20120816
  3. ACTEMRA [Suspect]
     Route: 042
     Dates: start: 20121029
  4. ACTEMRA [Suspect]
     Route: 042
     Dates: start: 20120929
  5. NORCO [Concomitant]
     Dosage: 10/325
     Route: 048
  6. ASA [Concomitant]
     Route: 065
  7. LYRICA [Concomitant]
     Route: 048
  8. ENALAPRIL [Concomitant]
     Route: 065
  9. GLYBURIDE [Concomitant]
     Route: 048
  10. LOVASTATIN [Concomitant]
     Route: 065
  11. CYMBALTA [Concomitant]
     Route: 065
  12. ROBAXIN [Concomitant]
     Route: 065
  13. ROPINIROLE [Concomitant]
     Dosage: RAPURAFE
     Route: 048
  14. METFORMIN [Concomitant]
     Route: 048

REACTIONS (3)
  - Ulcer haemorrhage [Recovering/Resolving]
  - Peptic ulcer [Unknown]
  - Pancreatitis [Unknown]
